FAERS Safety Report 13419528 (Version 3)
Quarter: 2017Q2

REPORT INFORMATION
  Report Type: Spontaneous
  Country: US (occurrence: US)
  Receive Date: 20170407
  Receipt Date: 20170630
  Transmission Date: 20170830
  Serious: No
  Sender: FDA-Public Use
  Company Number: US-JNJFOC-20170325121

PATIENT
  Sex: Female
  Weight: 68.04 kg

DRUGS (9)
  1. RISPERDAL M-TAB [Suspect]
     Active Substance: RISPERIDONE
     Indication: ANXIETY
     Dosage: BEGAN TREATMENT 7-YEARS BEFORE THE DATE OF THIS REPORT
     Route: 048
     Dates: start: 2010
  2. RISPERDAL M-TAB [Suspect]
     Active Substance: RISPERIDONE
     Indication: AUTISM SPECTRUM DISORDER
     Route: 048
  3. RISPERDAL M-TAB [Suspect]
     Active Substance: RISPERIDONE
     Indication: ANGER
     Route: 048
  4. RISPERIDONE. [Suspect]
     Active Substance: RISPERIDONE
     Indication: AUTISM SPECTRUM DISORDER
     Dosage: STARTED FEW YEARS FROM THE DATE OF THIS REPORT
     Route: 048
  5. RISPERIDONE. [Suspect]
     Active Substance: RISPERIDONE
     Indication: ANGER
     Dosage: STARTED FEW YEARS FROM THE DATE OF THIS REPORT
     Route: 048
  6. RISPERDAL M-TAB [Suspect]
     Active Substance: RISPERIDONE
     Indication: AUTISM SPECTRUM DISORDER
     Dosage: BEGAN TREATMENT 7-YEARS BEFORE THE DATE OF THIS REPORT
     Route: 048
     Dates: start: 2010
  7. RISPERDAL M-TAB [Suspect]
     Active Substance: RISPERIDONE
     Indication: ANXIETY
     Route: 048
  8. RISPERDAL M-TAB [Suspect]
     Active Substance: RISPERIDONE
     Indication: ANGER
     Dosage: BEGAN TREATMENT 7-YEARS BEFORE THE DATE OF THIS REPORT
     Route: 048
     Dates: start: 2010
  9. RISPERIDONE. [Suspect]
     Active Substance: RISPERIDONE
     Indication: ANXIETY
     Dosage: STARTED FEW YEARS FROM THE DATE OF THIS REPORT
     Route: 048

REACTIONS (4)
  - Product use issue [Unknown]
  - Product availability issue [Unknown]
  - Abdominal discomfort [Recovered/Resolved]
  - Off label use [Unknown]
